FAERS Safety Report 20396840 (Version 2)
Quarter: 2022Q1

REPORT INFORMATION
  Report Type: Spontaneous
  Country: US (occurrence: US)
  Receive Date: 20220131
  Receipt Date: 20220201
  Transmission Date: 20220423
  Serious: No
  Sender: FDA-Public Use
  Company Number: US-ABBVIE-21K-163-3845600-00

PATIENT
  Sex: Female

DRUGS (9)
  1. HUMIRA [Suspect]
     Active Substance: ADALIMUMAB
     Indication: Psoriatic arthropathy
     Route: 058
     Dates: start: 202012
  2. Covid-19 Vaccine  (NON-ABBVIE) [Concomitant]
     Indication: COVID-19 immunisation
     Dosage: JOHNSON + JOHNSON
     Route: 030
     Dates: start: 20210401, end: 20210401
  3. Glimepiride (NON-ABBVIE) [Concomitant]
     Indication: Type 2 diabetes mellitus
  4. Atorvastatin (NON-ABBVIE) [Concomitant]
     Indication: Blood triglycerides increased
  5. FUROSEMIDE [Concomitant]
     Active Substance: FUROSEMIDE
     Indication: Hypertension
  6. FUROSEMIDE [Concomitant]
     Active Substance: FUROSEMIDE
     Indication: Cardiac failure congestive
  7. Eliquis (NON-ABBVIE) [Concomitant]
     Indication: Atrial fibrillation
  8. Potassium (NON-ABBVIE) [Concomitant]
     Indication: Supplementation therapy
  9. Levothyroxine (NON-ABBVIE) [Concomitant]
     Indication: Hypothyroidism

REACTIONS (3)
  - Pain [Not Recovered/Not Resolved]
  - Musculoskeletal disorder [Not Recovered/Not Resolved]
  - Device use error [Recovered/Resolved]
